FAERS Safety Report 5600099-0 (Version None)
Quarter: 2008Q1

REPORT INFORMATION
  Report Type: 
  Country: None (occurrence: None)
  Receive Date: 20080123
  Receipt Date: 20080117
  Transmission Date: 20080703
  Serious: Yes (Hospitalization)
  Sender: FDA-Public Use
  Company Number: A0704687A

PATIENT
  Sex: Female

DRUGS (2)
  1. IMITREX [Suspect]
     Indication: DRUG USE FOR UNKNOWN INDICATION
     Route: 058
     Dates: start: 20070501
  2. CONCURRENT MEDICATIONS [Concomitant]

REACTIONS (4)
  - ADVERSE EVENT [None]
  - EMOTIONAL DISTRESS [None]
  - HEADACHE [None]
  - INCOHERENT [None]
